FAERS Safety Report 9141111 (Version 1)
Quarter: 2013Q1

REPORT INFORMATION
  Report Type: Spontaneous
  Country: US (occurrence: US)
  Receive Date: 20130305
  Receipt Date: 20130305
  Transmission Date: 20140127
  Serious: Yes (Death)
  Sender: FDA-Public Use
  Company Number: US-GILEAD-2013-0070854

PATIENT
  Sex: Male

DRUGS (12)
  1. LETAIRIS [Suspect]
     Indication: PRODUCT USED FOR UNKNOWN INDICATION
     Dosage: 10 MG, QD
     Dates: start: 20110602
  2. GLIMEPIRIDE [Concomitant]
  3. TEMAZEPAM [Concomitant]
  4. FUROSEMIDE [Concomitant]
  5. RAPAFLO [Concomitant]
  6. OMEPRAZOLE [Concomitant]
  7. LISINOPRIL [Concomitant]
  8. OXYBUTYNIN [Concomitant]
  9. FENOFIBRATE [Concomitant]
  10. LEVOTHYROXINE [Concomitant]
  11. ADCIRCA [Concomitant]
  12. TYVASO [Concomitant]

REACTIONS (1)
  - Death [Fatal]
